FAERS Safety Report 18697490 (Version 1)
Quarter: 2021Q1

REPORT INFORMATION
  Report Type: Spontaneous
  Country: US (occurrence: US)
  Receive Date: 20210105
  Receipt Date: 20210105
  Transmission Date: 20210419
  Serious: No
  Sender: FDA-Public Use
  Company Number: US-ELI_LILLY_AND_COMPANY-US202012006381

PATIENT
  Sex: Male

DRUGS (5)
  1. HUMALOG [Suspect]
     Active Substance: INSULIN LISPRO
     Dosage: 60 U, DAILY(SLIDING SCALE, UPTO 60)
     Route: 058
  2. LEVEMIR [Concomitant]
     Active Substance: INSULIN DETEMIR
     Indication: PRODUCT USED FOR UNKNOWN INDICATION
  3. HUMALOG [Suspect]
     Active Substance: INSULIN LISPRO
     Indication: TYPE 1 DIABETES MELLITUS
     Dosage: 60 U, DAILY(SLIDING SCALE, UPTO 60)
     Route: 058
     Dates: start: 2014
  4. HUMALOG [Suspect]
     Active Substance: INSULIN LISPRO
     Dosage: 60 U, DAILY(SLIDING SCALE, UPTO 60)
     Route: 058
  5. HUMALOG [Suspect]
     Active Substance: INSULIN LISPRO
     Indication: TYPE 1 DIABETES MELLITUS
     Dosage: 60 U, DAILY(SLIDING SCALE, UPTO 60)
     Route: 058
     Dates: start: 2014

REACTIONS (2)
  - Incorrect dose administered [Unknown]
  - Blood glucose increased [Recovering/Resolving]
